FAERS Safety Report 9385908 (Version 1)
Quarter: 2013Q3

REPORT INFORMATION
  Report Type: Report from Study
  Country: DE (occurrence: DE)
  Receive Date: 20130705
  Receipt Date: 20130705
  Transmission Date: 20140515
  Serious: Yes (Hospitalization)
  Sender: FDA-Public Use
  Company Number: DE-ASTRAZENECA-2013SE50089

PATIENT
  Age: 9 Month
  Sex: Male

DRUGS (10)
  1. SYNAGIS [Suspect]
     Indication: ANTIVIRAL PROPHYLAXIS
     Route: 030
     Dates: start: 20121120, end: 20121120
  2. SYNAGIS [Suspect]
     Indication: ANTIVIRAL PROPHYLAXIS
     Route: 030
     Dates: start: 20121221, end: 20121221
  3. SYNAGIS [Suspect]
     Indication: ANTIVIRAL PROPHYLAXIS
     Route: 030
     Dates: start: 20130122, end: 20130122
  4. SYNAGIS [Suspect]
     Indication: ANTIVIRAL PROPHYLAXIS
     Route: 030
     Dates: start: 20130219, end: 20130219
  5. SYNAGIS [Suspect]
     Indication: ANTIVIRAL PROPHYLAXIS
     Route: 030
     Dates: start: 20130320, end: 20130320
  6. SYNAGIS [Suspect]
     Indication: ANTIVIRAL PROPHYLAXIS
     Route: 030
     Dates: start: 20130426, end: 20130426
  7. IRON [Concomitant]
     Dosage: 5 DROPS TWO TIMES A DAY
     Route: 048
  8. BUDESONIDE [Concomitant]
     Dosage: ONE PUFF TWO TIMES A DAY
  9. COLECALCIFEROL [Concomitant]
     Dates: end: 2013
  10. COLECALCIFEROL [Concomitant]

REACTIONS (4)
  - Bronchiolitis [Recovered/Resolved]
  - Respiratory failure [Recovered/Resolved]
  - Respiratory acidosis [Recovered/Resolved]
  - Respiratory syncytial virus bronchiolitis [Recovered/Resolved]
